FAERS Safety Report 15167141 (Version 1)
Quarter: 2018Q3

REPORT INFORMATION
  Report Type: Spontaneous
  Country: US (occurrence: US)
  Receive Date: 20180719
  Receipt Date: 20180719
  Transmission Date: 20181010
  Serious: No
  Sender: FDA-Public Use
  Company Number: US-PFIZER INC-2018289261

PATIENT
  Sex: Male

DRUGS (2)
  1. GABAPENTIN. [Suspect]
     Active Substance: GABAPENTIN
     Dosage: AT LEAST THREE TO FOUR/INCREASED THE DOSE
  2. GABAPENTIN. [Suspect]
     Active Substance: GABAPENTIN
     Indication: PAIN
     Dosage: STARTED AT LOW

REACTIONS (2)
  - Weight decreased [Unknown]
  - Drug ineffective for unapproved indication [Unknown]
